FAERS Safety Report 5522568-4 (Version None)
Quarter: 2007Q4

REPORT INFORMATION
  Report Type: 
  Country: None (occurrence: None)
  Receive Date: 20071120
  Receipt Date: 20071108
  Transmission Date: 20080405
  Serious: Yes (Hospitalization)
  Sender: FDA-Public Use
  Company Number: US-PFIZER INC-2007094015

PATIENT
  Sex: Male
  Weight: 78 kg

DRUGS (1)
  1. SUTENT [Suspect]
     Indication: NON-SMALL CELL LUNG CANCER
     Dosage: DAILY DOSE:37.5MG-FREQ:DAILY
     Route: 048
     Dates: start: 20070716, end: 20070824

REACTIONS (2)
  - LETHARGY [None]
  - SPEECH DISORDER [None]
